FAERS Safety Report 9078544 (Version 1)
Quarter: 2013Q1

REPORT INFORMATION
  Report Type: Report from Study
  Country: US (occurrence: US)
  Receive Date: 20130130
  Receipt Date: 20130130
  Transmission Date: 20140127
  Serious: No
  Sender: FDA-Public Use
  Company Number: US-ABBOTT-12P-163-0960351-00

PATIENT
  Age: 67 Year
  Sex: Female

DRUGS (7)
  1. HUMIRA 40 MG/0.8 ML PEN [Suspect]
     Indication: PSORIASIS
     Route: 058
     Dates: start: 20120507
  2. ADVAIR [Concomitant]
     Indication: ASTHMA
  3. SPIRIVA [Concomitant]
     Indication: ASTHMA
     Dosage: 1 PUFF DAILY
  4. VENTOLIN [Concomitant]
     Indication: ASTHMA
     Dosage: RESCUE INHALER, AS NEEDED
     Route: 055
  5. SINGULAIR [Concomitant]
     Indication: ASTHMA
     Dosage: 1 TAB IN AM
  6. NEXIUM [Concomitant]
     Indication: GASTROOESOPHAGEAL REFLUX DISEASE
     Dosage: 1 CAPSULE IN AM
  7. WELLBUTRIN [Concomitant]
     Indication: DEPRESSION
     Dosage: 1 TABLET IN MORNING

REACTIONS (1)
  - Oral disorder [Not Recovered/Not Resolved]
